FAERS Safety Report 18904083 (Version 2)
Quarter: 2021Q1

REPORT INFORMATION
  Report Type: Spontaneous
  Country: GB (occurrence: GB)
  Receive Date: 20210217
  Receipt Date: 20210227
  Transmission Date: 20210420
  Serious: Yes (Disabling)
  Sender: FDA-Public Use
  Company Number: GB-TEVA-2021-GB-1877600

PATIENT
  Age: 61 Year
  Sex: Female
  Weight: 60 kg

DRUGS (2)
  1. IBANDRONIC ACID. [Suspect]
     Active Substance: IBANDRONIC ACID
     Indication: OSTEOPOROSIS
     Route: 048
     Dates: start: 20201217, end: 20210118
  2. THYROXINE [Concomitant]
     Active Substance: LEVOTHYROXINE
     Indication: PRODUCT USED FOR UNKNOWN INDICATION
     Route: 065

REACTIONS (3)
  - Uveitis [Not Recovered/Not Resolved]
  - Pain in jaw [Not Recovered/Not Resolved]
  - Labyrinthitis [Not Recovered/Not Resolved]

NARRATIVE: CASE EVENT DATE: 20201228
